FAERS Safety Report 10246783 (Version 1)
Quarter: 2014Q2

REPORT INFORMATION
  Report Type: Report from Study
  Country: RU (occurrence: RU)
  Receive Date: 20140619
  Receipt Date: 20140619
  Transmission Date: 20141212
  Serious: Yes (Hospitalization)
  Sender: FDA-Public Use
  Company Number: PHHY2014RU074785

PATIENT
  Age: 55 Year
  Sex: Female
  Weight: 68 kg

DRUGS (3)
  1. TASIGNA [Suspect]
     Indication: CHRONIC MYELOID LEUKAEMIA
     Dates: start: 20130809
  2. NO TREATMENT RECEIVED [Suspect]
  3. METHOTREXATE [Concomitant]
     Indication: AUTOIMMUNE DISORDER

REACTIONS (1)
  - Myocardial infarction [Recovering/Resolving]
